FAERS Safety Report 13952311 (Version 1)
Quarter: 2017Q3

REPORT INFORMATION
  Report Type: Spontaneous
  Country: US (occurrence: US)
  Receive Date: 20170911
  Receipt Date: 20170911
  Transmission Date: 20171128
  Serious: No
  Sender: FDA-Public Use
  Company Number: US-TEVA-698770USA

PATIENT
  Age: 73 Year
  Sex: Female
  Weight: 81.72 kg

DRUGS (1)
  1. FENTANYL. [Suspect]
     Active Substance: FENTANYL
     Indication: PAIN
     Dosage: 5
     Route: 065
     Dates: start: 20160908

REACTIONS (3)
  - Application site irritation [Unknown]
  - Product quality issue [Unknown]
  - Application site rash [Unknown]

NARRATIVE: CASE EVENT DATE: 201609
